FAERS Safety Report 20145465 (Version 1)
Quarter: 2021Q4

REPORT INFORMATION
  Report Type: Spontaneous
  Country: CN (occurrence: CN)
  Receive Date: 20211203
  Receipt Date: 20211203
  Transmission Date: 20220303
  Serious: Yes (Other)
  Sender: FDA-Public Use
  Company Number: CN-PFIZER INC-202101655657

PATIENT
  Age: 61 Year
  Sex: Female
  Weight: 55 kg

DRUGS (1)
  1. CELECOXIB [Suspect]
     Active Substance: CELECOXIB
     Indication: Analgesic therapy
     Dosage: 1 DF, 1X/DAY
     Route: 048
     Dates: start: 20211118, end: 20211119

REACTIONS (2)
  - Drug hypersensitivity [Recovered/Resolved]
  - Erythema [Recovered/Resolved]

NARRATIVE: CASE EVENT DATE: 20211118
